FAERS Safety Report 5203607-7 (Version None)
Quarter: 2007Q1

REPORT INFORMATION
  Report Type: 
  Country: None (occurrence: None)
  Receive Date: 20070110
  Receipt Date: 20070102
  Transmission Date: 20070707
  Serious: Yes (Hospitalization)
  Sender: FDA-Public Use
  Company Number: SE-BRISTOL-MYERS SQUIBB COMPANY-13628532

PATIENT
  Age: 81 Year
  Sex: Female

DRUGS (8)
  1. APROVEL [Suspect]
     Indication: HYPERTENSION
     Dates: end: 20060918
  2. CITALOPRAM HYDROBROMIDE [Suspect]
     Indication: DEPRESSION
     Dates: start: 20060908, end: 20060918
  3. SALURES [Suspect]
     Indication: HYPERTENSION
     Dates: end: 20060918
  4. KALCIPOS-D [Concomitant]
  5. OMEPRAZOLE [Concomitant]
  6. SOBRIL [Concomitant]
  7. ZOLPIDEM TARTRATE [Concomitant]
  8. TRIOBE [Concomitant]

REACTIONS (1)
  - HYPONATRAEMIA [None]
